FAERS Safety Report 25809975 (Version 3)
Quarter: 2025Q4

REPORT INFORMATION
  Report Type: Report from Study
  Country: US (occurrence: US)
  Receive Date: 20250917
  Receipt Date: 20251104
  Transmission Date: 20260118
  Serious: Yes (Hospitalization, Other)
  Sender: BAXTER
  Company Number: US-BAXTER-2025BAX021130

PATIENT
  Age: 56 Year
  Sex: Male
  Weight: 171.1 kg

DRUGS (64)
  1. DOXORUBICIN [Suspect]
     Active Substance: DOXORUBICIN
     Indication: T-cell lymphoma
     Dosage: 50 MG/M2, CYCLIC, (CYCLE 1 OFF-STUDY CHOP)
     Route: 042
     Dates: start: 20240209
  2. DOXORUBICIN [Suspect]
     Active Substance: DOXORUBICIN
     Dosage: 50 MG/M2, CYCLIC, CYCLE 2
     Route: 042
     Dates: start: 20240229, end: 20250603
  3. DOXORUBICIN [Suspect]
     Active Substance: DOXORUBICIN
     Dosage: 50 MG/M2, CYCLIC, CYCLE 3
     Route: 042
     Dates: start: 20240321, end: 20250603
  4. DOXORUBICIN [Suspect]
     Active Substance: DOXORUBICIN
     Dosage: 37.5 MG/M2, CYCLIC, CYCLE 4
     Route: 042
     Dates: start: 20240418
  5. DOXORUBICIN [Suspect]
     Active Substance: DOXORUBICIN
     Dosage: 37.5 MG/M2, CYCLIC, CYCLE 5
     Route: 042
     Dates: start: 20240509
  6. DOXORUBICIN [Suspect]
     Active Substance: DOXORUBICIN
     Dosage: 37.5 MG/M2, CYCLIC, CYCLE 6
     Route: 042
     Dates: start: 20240530
  7. CYCLOPHOSPHAMIDE [Suspect]
     Active Substance: CYCLOPHOSPHAMIDE
     Indication: T-cell lymphoma
     Dosage: 750 MG/M2 CYCLIC (750 MG/M2, CYCLIC(CYCLE 1 OFF-STUDY CHOP)
     Route: 042
     Dates: start: 20240209
  8. CYCLOPHOSPHAMIDE [Suspect]
     Active Substance: CYCLOPHOSPHAMIDE
     Dosage: 750 MG/M2 CYCLIC (750 MG/M2, CYCLIC (CYCLE 2)),
     Route: 042
     Dates: start: 20240229, end: 20240603
  9. CYCLOPHOSPHAMIDE [Suspect]
     Active Substance: CYCLOPHOSPHAMIDE
     Dosage: 750 MG/M2 CYCLIC (750 MG/M2, CYCLIC (CYCLE 3)
     Route: 042
     Dates: start: 20240321, end: 20240603
  10. CYCLOPHOSPHAMIDE [Suspect]
     Active Substance: CYCLOPHOSPHAMIDE
     Dosage: 562.5 MG/M2 CYCLIC (562.5 MG/M2, CYCLIC (CYCLE 4)
     Route: 042
     Dates: start: 20240418, end: 20240603
  11. CYCLOPHOSPHAMIDE [Suspect]
     Active Substance: CYCLOPHOSPHAMIDE
     Dosage: 562.5 MG/M2 CYCLIC (562.5 MG/M2, CYCLIC (CYCLE 5
     Route: 042
     Dates: start: 20240509, end: 20240603
  12. CYCLOPHOSPHAMIDE [Suspect]
     Active Substance: CYCLOPHOSPHAMIDE
     Dosage: 562.5 MG/M2 CYCLIC (562.5 MG/M2, CYCLIC (CYCLE 6)
     Route: 042
     Dates: start: 20240530, end: 20240603
  13. BRENTUXIMAB VEDOTIN [Suspect]
     Active Substance: BRENTUXIMAB VEDOTIN
     Indication: T-cell lymphoma
     Dosage: 1.8 MG/KG, EVERY 3 WK
     Route: 042
     Dates: start: 20240229, end: 20240403
  14. BRENTUXIMAB VEDOTIN [Suspect]
     Active Substance: BRENTUXIMAB VEDOTIN
     Dosage: 1.8 MG/KG, CYCLIC, (CYCLE 4)
     Route: 042
     Dates: start: 20240418
  15. BRENTUXIMAB VEDOTIN [Suspect]
     Active Substance: BRENTUXIMAB VEDOTIN
     Dosage: 1.8 MG/KG, CYCLIC, (CYCLE 5)
     Route: 042
     Dates: start: 20240509
  16. BRENTUXIMAB VEDOTIN [Suspect]
     Active Substance: BRENTUXIMAB VEDOTIN
     Dosage: 1.8 MG/KG, CYCLIC, (CYCLE 6)
     Route: 042
     Dates: start: 20240530
  17. BRENTUXIMAB VEDOTIN [Suspect]
     Active Substance: BRENTUXIMAB VEDOTIN
     Dosage: 1.8 MG/KG, CYCLIC, (9 CYCLES, CONSOLIDATION MAINTENANCE
     Route: 042
     Dates: start: 20241017
  18. BRENTUXIMAB VEDOTIN [Suspect]
     Active Substance: BRENTUXIMAB VEDOTIN
     Dosage: 1.8 MG/KG CYCLIC (1.8 MG/KG, CYCLIC (9 CYCLES, CONSOLIDATION MAINTENANCE
     Route: 042
     Dates: start: 20241107
  19. BRENTUXIMAB VEDOTIN [Suspect]
     Active Substance: BRENTUXIMAB VEDOTIN
     Dosage: 1.8 MG/KG CYCLIC (1.8 MG/KG, CYCLIC (9 CYCLES, CONSOLIDATION MAINTENANCE
     Route: 042
     Dates: start: 20241127
  20. BRENTUXIMAB VEDOTIN [Suspect]
     Active Substance: BRENTUXIMAB VEDOTIN
     Dosage: 1.8 MG/KG CYCLIC (1.8 MG/KG, CYCLIC (9 CYCLES, CONSOLIDATION MAINTENANCE
     Route: 042
     Dates: start: 20241219
  21. BRENTUXIMAB VEDOTIN [Suspect]
     Active Substance: BRENTUXIMAB VEDOTIN
     Dosage: 1.8 MG/KG CYCLIC (1.8 MG/KG, CYCLIC (9 CYCLES, CONSOLIDATION MAINTENANCE
     Route: 042
     Dates: start: 20240109
  22. BRENTUXIMAB VEDOTIN [Suspect]
     Active Substance: BRENTUXIMAB VEDOTIN
     Dosage: 1.8 MG/KG CYCLIC (1.8 MG/KG, CYCLIC (9 CYCLES, CONSOLIDATION MAINTENANCE
     Route: 042
     Dates: start: 20240130
  23. BRENTUXIMAB VEDOTIN [Suspect]
     Active Substance: BRENTUXIMAB VEDOTIN
     Dosage: 1.8 MG/KG CYCLIC (1.8 MG/KG, CYCLIC (9 CYCLES, CONSOLIDATION MAINTENANCE)
     Route: 042
     Dates: start: 20240220
  24. BRENTUXIMAB VEDOTIN [Suspect]
     Active Substance: BRENTUXIMAB VEDOTIN
     Dosage: 1.8 MG/KG CYCLIC (1.8 MG/KG, CYCLIC (9 CYCLES, CONSOLIDATION MAINTENANCE
     Route: 042
     Dates: start: 20240313
  25. BRENTUXIMAB VEDOTIN [Suspect]
     Active Substance: BRENTUXIMAB VEDOTIN
     Dosage: 1.8 MG/KG CYCLIC (1.8 MG/KG, CYCLIC (9 CYCLES, CONSOLIDATION MAINTENANCE)
     Route: 042
     Dates: start: 20240403
  26. ETOPOSIDE [Suspect]
     Active Substance: ETOPOSIDE
     Indication: T-cell lymphoma
     Dosage: 100 MG/M2 CYCLIC (100 MG/M2, CYCLIC (CYCLE 2)
     Route: 042
     Dates: start: 20240229
  27. ETOPOSIDE [Suspect]
     Active Substance: ETOPOSIDE
     Dosage: 100 MG/M2 CYCLIC (100 MG/M2, CYCLIC (CYCLE 3)
     Route: 042
     Dates: start: 20240321
  28. ETOPOSIDE [Suspect]
     Active Substance: ETOPOSIDE
     Dosage: 75 MG/M2 CYCLIC (75 MG/M2, CYCLIC (CYCLE 4
     Route: 042
     Dates: start: 20240418, end: 20240420
  29. ETOPOSIDE [Suspect]
     Active Substance: ETOPOSIDE
     Dosage: 75 MG/M2 CYCLIC (75 MG/M2, CYCLIC (CYCLE 5))
     Route: 042
     Dates: start: 20240509, end: 20240511
  30. ETOPOSIDE [Suspect]
     Active Substance: ETOPOSIDE
     Dosage: 75 MG/M2 CYCLIC (75 MG/M2, CYCLIC (CYCLE 6)),
     Route: 042
     Dates: start: 20240530, end: 20240601
  31. VINCRISTINE SULFATE [Suspect]
     Active Substance: VINCRISTINE SULFATE
     Dosage: 2 MG, CYCLIC (2 MG (TOTAL), CYCLE 1 OFF-STUDY CHOP)),
     Route: 042
     Dates: start: 20240209
  32. PREDNISONE [Suspect]
     Active Substance: PREDNISONE
     Indication: T-cell lymphoma
     Dosage: 100 MG, CYCLIC (CYCLE 1 OFF-STUDY CHOP
     Route: 048
     Dates: start: 20240209, end: 20240213
  33. PREDNISONE [Suspect]
     Active Substance: PREDNISONE
     Dosage: 100 MG CYCLIC (100 MG, CYCLIC (CYCLE 2)
     Route: 048
     Dates: start: 20240229, end: 20240304
  34. PREDNISONE [Suspect]
     Active Substance: PREDNISONE
     Dosage: 100 MG CYCLIC (100 MG, CYCLIC (CYCLE 3))
     Route: 048
     Dates: start: 20240321, end: 20240325
  35. PREDNISONE [Suspect]
     Active Substance: PREDNISONE
     Dosage: 100 MG CYCLIC (100 MG, CYCLIC (CYCLE 4)),
     Route: 048
     Dates: start: 20240418, end: 20240422
  36. PREDNISONE [Suspect]
     Active Substance: PREDNISONE
     Dosage: 100 MG CYCLIC (100 MG, CYCLIC (CYCLE 5))
     Route: 048
     Dates: start: 20240509, end: 20240513
  37. PREDNISONE [Suspect]
     Active Substance: PREDNISONE
     Dosage: 100 MG CYCLIC (100 MG, CYCLIC (CYCLE 6
     Route: 048
     Dates: start: 20240530, end: 20240603
  38. ACYCLOVIR [Concomitant]
     Active Substance: ACYCLOVIR
     Indication: Antiviral prophylaxis
     Dosage: UNK
     Route: 048
     Dates: start: 20240822
  39. ALBUTEROL SULFATE [Concomitant]
     Active Substance: ALBUTEROL SULFATE
     Indication: Chronic obstructive pulmonary disease
     Dosage: UNK
     Dates: start: 20250324
  40. ALLOPURINOL [Concomitant]
     Active Substance: ALLOPURINOL
     Indication: Prophylaxis
     Dosage: UNK
     Route: 048
     Dates: start: 20240207, end: 20250403
  41. APIXABAN [Concomitant]
     Active Substance: APIXABAN
     Indication: Pulmonary embolism
     Dosage: UNK
     Route: 048
     Dates: start: 20240405
  42. APIXABAN [Concomitant]
     Active Substance: APIXABAN
     Dosage: 5 MG, BID
     Route: 065
     Dates: start: 20250826
  43. ZITHROMAX [Concomitant]
     Active Substance: AZITHROMYCIN DIHYDRATE
     Indication: Cough
     Dosage: UNK
     Route: 065
     Dates: start: 20241223, end: 20241223
  44. ZITHROMAX [Concomitant]
     Active Substance: AZITHROMYCIN DIHYDRATE
     Dosage: UNK
     Route: 065
     Dates: start: 20241224, end: 20241227
  45. DICLOFENAC SODIUM [Concomitant]
     Active Substance: DICLOFENAC SODIUM
     Indication: Pain
     Dosage: UNK
     Route: 065
     Dates: start: 20240911, end: 20240919
  46. GABAPENTIN [Concomitant]
     Active Substance: GABAPENTIN
     Indication: Pain
     Dosage: UNK
     Route: 065
     Dates: start: 20240904, end: 20241017
  47. LEVAQUIN [Concomitant]
     Active Substance: LEVOFLOXACIN
     Indication: Upper respiratory tract infection
     Dosage: UNK
     Route: 048
     Dates: start: 20250403, end: 20250413
  48. LOPERAMIDE HYDROCHLORIDE [Concomitant]
     Active Substance: LOPERAMIDE HYDROCHLORIDE
     Indication: Diarrhoea
     Dosage: UNK
     Route: 048
     Dates: start: 20240321, end: 20241017
  49. LOSARTAN [Concomitant]
     Active Substance: LOSARTAN
     Indication: Hypertension
     Dosage: 25 MG, QD
     Route: 048
     Dates: end: 20240724
  50. LOSARTAN [Concomitant]
     Active Substance: LOSARTAN
     Dosage: 50 MG, QD
     Route: 048
     Dates: start: 20240724
  51. MEDROL [Concomitant]
     Active Substance: METHYLPREDNISOLONE
     Indication: Cough
     Dosage: UNK
     Route: 065
     Dates: start: 20241223, end: 20241227
  52. MEDROL [Concomitant]
     Active Substance: METHYLPREDNISOLONE
     Dosage: UNK
     Route: 065
     Dates: start: 20250324, end: 20250330
  53. METOPROLOL SUCCINATE [Concomitant]
     Active Substance: METOPROLOL SUCCINATE
     Indication: Bundle branch block right
     Dosage: UNK
     Route: 048
     Dates: start: 20240418
  54. MONTELUKAST [Concomitant]
     Active Substance: MONTELUKAST
     Indication: Chronic obstructive pulmonary disease
     Dosage: UNK
     Route: 065
  55. OMEPRAZOLE [Concomitant]
     Active Substance: OMEPRAZOLE
     Indication: Gastrooesophageal reflux disease
     Dosage: UNK
     Route: 048
     Dates: start: 20240103
  56. OMEPRAZOLE [Concomitant]
     Active Substance: OMEPRAZOLE
     Indication: Gastric ulcer
  57. ONDANSETRON [Concomitant]
     Active Substance: ONDANSETRON
     Indication: Nausea
     Dosage: UNK
     Route: 048
     Dates: end: 20241017
  58. ONDANSETRON [Concomitant]
     Active Substance: ONDANSETRON
     Indication: Vomiting
  59. OXYCODONE [Concomitant]
     Active Substance: OXYCODONE
     Indication: Pain
     Dosage: UNK
     Route: 048
     Dates: start: 20240226, end: 20240530
  60. OXYCODONE [Concomitant]
     Active Substance: OXYCODONE
     Dosage: UNK
     Route: 048
     Dates: start: 20240904, end: 20241007
  61. PROCHLORPERAZINE [Concomitant]
     Active Substance: PROCHLORPERAZINE
     Indication: Nausea
     Dosage: UNK
     Route: 048
     Dates: end: 20241017
  62. TRELEGY ELLIPTA [Concomitant]
     Active Substance: FLUTICASONE FUROATE\UMECLIDINIUM BROMIDE\VILANTEROL TRIFENATATE
     Indication: Chronic obstructive pulmonary disease
     Dosage: INHALATION VAPOUR
     Dates: end: 20240919
  63. TRIAMTERENE AND HYDROCHLOROTHIAZIDE [Concomitant]
     Active Substance: HYDROCHLOROTHIAZIDE\TRIAMTERENE
     Indication: Hypertension
     Dosage: UNK
     Route: 048
  64. VALACYCLOVIR [Concomitant]
     Active Substance: VALACYCLOVIR HYDROCHLORIDE
     Indication: Antiviral prophylaxis
     Dosage: UNK
     Route: 048
     Dates: start: 20240207, end: 20240822

REACTIONS (3)
  - Oedema peripheral [Recovered/Resolved]
  - Atrial flutter [Recovered/Resolved]
  - Cardiac failure [Recovered/Resolved]

NARRATIVE: CASE EVENT DATE: 20250821
